FAERS Safety Report 7583230-X (Version None)
Quarter: 2011Q2

REPORT INFORMATION
  Report Type: 
  Country: None (occurrence: None)
  Receive Date: 20110627
  Receipt Date: 20110627
  Transmission Date: 20111010
  Serious: Yes (Death, Hospitalization)
  Sender: FDA-Public Use
  Company Number: None

PATIENT
  Age: 89 Year
  Sex: Female

DRUGS (4)
  1. WARFARIN SODIUM [Concomitant]
  2. OLMESARTAN MEDOXOMIL [Concomitant]
  3. LEVOTHYROXINE SODIUM [Concomitant]
  4. DRONEDARONE HCL [Suspect]

REACTIONS (9)
  - COMA [None]
  - HEPATIC CIRRHOSIS [None]
  - ANTINUCLEAR ANTIBODY POSITIVE [None]
  - SMOOTH MUSCLE ANTIBODY POSITIVE [None]
  - HEPATIC FAILURE [None]
  - HEPATOCELLULAR INJURY [None]
  - SERUM FERRITIN INCREASED [None]
  - HEPATITIS [None]
  - BLOOD IRON INCREASED [None]
